FAERS Safety Report 8960323 (Version 1)
Quarter: 2012Q4

REPORT INFORMATION
  Report Type: Report from Study
  Country: ES (occurrence: ES)
  Receive Date: 20121211
  Receipt Date: 20121211
  Transmission Date: 20130627
  Serious: Yes (Hospitalization)
  Sender: FDA-Public Use
  Company Number: ES-GLAXOSMITHKLINE-Z0016038C

PATIENT
  Age: 65 Year
  Sex: Female
  Weight: 49 kg

DRUGS (12)
  1. OFATUMUMAB [Suspect]
     Indication: DIFFUSE LARGE B-CELL LYMPHOMA RECURRENT
     Dosage: 1000MG Cyclic
     Route: 042
     Dates: start: 20120327, end: 20120427
  2. DEXAMETHASONE [Suspect]
     Indication: DIFFUSE LARGE B-CELL LYMPHOMA REFRACTORY
     Dosage: 40MG Every 3 weeks
     Route: 048
     Dates: start: 20120328, end: 20120501
  3. CISPLATIN [Suspect]
     Indication: DIFFUSE LARGE B-CELL LYMPHOMA RECURRENT
     Dosage: 100MGM2 Every 3 weeks
     Route: 042
     Dates: start: 20120328, end: 20120429
  4. CYTARABINE [Suspect]
     Indication: DIFFUSE LARGE B-CELL LYMPHOMA RECURRENT
     Dosage: 4GM2 Every 3 weeks
     Route: 042
     Dates: start: 20120329, end: 20120430
  5. CEFTAZIDIME [Concomitant]
     Indication: ANTIBIOTIC THERAPY
     Dosage: 2G Three times per day
     Route: 042
     Dates: start: 20120518
  6. LINEZOLID [Concomitant]
     Indication: ANTIBIOTIC THERAPY
     Dosage: 600MG Twice per day
     Route: 042
     Dates: start: 20120518, end: 20120519
  7. PREGABALIN [Concomitant]
     Indication: ANALGESIC THERAPY
     Dosage: 75MG Three times per day
     Route: 048
     Dates: start: 20120411
  8. SULFAMETHOXAZOLE [Concomitant]
     Indication: PROPHYLAXIS
     Dosage: 800MG Four times per week
     Route: 048
  9. TRIMETHOPRIM [Concomitant]
     Indication: PROPHYLAXIS
     Dosage: 160MG Four times per week
     Route: 048
     Dates: start: 20120518
  10. OMEPRAZOL [Concomitant]
     Indication: PROPHYLAXIS
     Dosage: 20MG Twice per day
     Route: 048
     Dates: start: 20120518
  11. ACFOL [Concomitant]
     Indication: VITAMIN SUPPLEMENTATION
     Dosage: 5MG Three times per week
     Route: 048
     Dates: start: 20120518
  12. METRONIDAZOL [Concomitant]
     Indication: ANTIBIOTIC THERAPY
     Dosage: 250MG Four times per day
     Route: 048
     Dates: start: 20120521, end: 20120529

REACTIONS (2)
  - Pyrexia [Recovered/Resolved]
  - Diarrhoea [Recovered/Resolved]
